FAERS Safety Report 21251282 (Version 4)
Quarter: 2023Q1

REPORT INFORMATION
  Report Type: Report from Study
  Country: US (occurrence: US)
  Receive Date: 20220825
  Receipt Date: 20230202
  Transmission Date: 20230417
  Serious: Yes (Hospitalization, Other)
  Sender: FDA-Public Use
  Company Number: US-NOVARTISPH-NVSC2022US186954

PATIENT
  Sex: Male
  Weight: 127 kg

DRUGS (2)
  1. ENTRESTO [Suspect]
     Active Substance: SACUBITRIL\VALSARTAN
     Indication: Cardiac failure congestive
     Dosage: 1 DOSAGE FORM, BID (49/51 MG)
     Route: 048
  2. ENTRESTO [Suspect]
     Active Substance: SACUBITRIL\VALSARTAN
     Dosage: 1 DOSAGE FORM, BID (97/103 MG)
     Route: 048
     Dates: start: 202104

REACTIONS (21)
  - Intervertebral disc protrusion [Unknown]
  - Pulmonary oedema [Unknown]
  - Thrombosis [Unknown]
  - Heart rate irregular [Unknown]
  - Sleep apnoea syndrome [Recovering/Resolving]
  - Disturbance in attention [Unknown]
  - Memory impairment [Not Recovered/Not Resolved]
  - Weight increased [Recovering/Resolving]
  - Dyspnoea [Not Recovered/Not Resolved]
  - Ejection fraction decreased [Recovered/Resolved]
  - Cerebral disorder [Unknown]
  - Malaise [Unknown]
  - Chest discomfort [Unknown]
  - Nightmare [Unknown]
  - Extrasystoles [Unknown]
  - Blood glucose decreased [Unknown]
  - Insomnia [Unknown]
  - Cough [Unknown]
  - Peripheral swelling [Unknown]
  - Fatigue [Unknown]
  - Product dose omission in error [Unknown]
